FAERS Safety Report 6633297-8 (Version None)
Quarter: 2010Q1

REPORT INFORMATION
  Report Type: 
  Country: None (occurrence: None)
  Receive Date: 20100312
  Receipt Date: 20090610
  Transmission Date: 20100710
  Serious: No
  Sender: FDA-Public Use
  Company Number: US-ABBOTT-09P-163-0579274-00

PATIENT
  Sex: Female

DRUGS (1)
  1. ERYPED [Suspect]
     Indication: DYSPEPSIA
     Dosage: PER 5 ML 30 MINUTES BEFOE EACH MEAL
     Dates: start: 20090201

REACTIONS (5)
  - ABDOMINAL DISCOMFORT [None]
  - BACK PAIN [None]
  - BURNING SENSATION [None]
  - NAUSEA [None]
  - URINARY TRACT INFECTION [None]
